FAERS Safety Report 6948645-9 (Version None)
Quarter: 2010Q3

REPORT INFORMATION
  Report Type: 
  Country: None (occurrence: None)
  Receive Date: 20100828
  Receipt Date: 20091105
  Transmission Date: 20110219
  Serious: No
  Sender: FDA-Public Use
  Company Number: US-ABBOTT-09P-163-0607446-00

PATIENT
  Sex: Male
  Weight: 108.96 kg

DRUGS (7)
  1. NIASPAN [Suspect]
     Indication: BLOOD CHOLESTEROL INCREASED
     Dates: start: 20091001, end: 20091104
  2. NIASPAN [Suspect]
     Dates: start: 20091104
  3. NIASPAN [Suspect]
     Dates: start: 20090901, end: 20091001
  4. PAXIL [Concomitant]
     Indication: DEPRESSION
  5. VITAMINS [Concomitant]
     Indication: VITAMIN SUPPLEMENTATION
  6. FISH OIL [Concomitant]
     Indication: MEDICAL DIET
  7. GARLIC [Concomitant]
     Indication: MEDICAL DIET

REACTIONS (4)
  - FEELING HOT [None]
  - PRURITUS [None]
  - RASH MACULAR [None]
  - WRONG TECHNIQUE IN DRUG USAGE PROCESS [None]
